FAERS Safety Report 16686948 (Version 1)
Quarter: 2019Q3

REPORT INFORMATION
  Report Type: Spontaneous
  Country: US (occurrence: US)
  Receive Date: 20190809
  Receipt Date: 20190809
  Transmission Date: 20191004
  Serious: Yes (Congenital Anomaly, Other)
  Sender: FDA-Public Use
  Company Number: US-COOPERSURGICAL, INC.-US-2019CPS002440

PATIENT
  Age: 0 Year
  Sex: Male
  Weight: 55.78 kg

DRUGS (1)
  1. PARAGARD T 380A [Suspect]
     Active Substance: COPPER
     Indication: CONTRACEPTION
     Dosage: UNK
     Route: 064
     Dates: start: 20160826

REACTIONS (2)
  - Foetal exposure during pregnancy [Recovered/Resolved]
  - Congenital skin dimples [Unknown]

NARRATIVE: CASE EVENT DATE: 20180213
